FAERS Safety Report 5751316-8 (Version None)
Quarter: 2008Q2

REPORT INFORMATION
  Report Type: 
  Country: None (occurrence: None)
  Receive Date: 20080528
  Receipt Date: 20080516
  Transmission Date: 20081010
  Serious: Yes (Hospitalization, Other)
  Sender: FDA-Public Use
  Company Number: US-PFIZER INC-2008042733

PATIENT
  Sex: Female
  Weight: 59 kg

DRUGS (9)
  1. CHANTIX [Suspect]
     Indication: SMOKING CESSATION THERAPY
     Dosage: FREQ:EVERY DAY
  2. OSCAL [Concomitant]
  3. LOPRESSOR [Concomitant]
  4. ATIVAN [Concomitant]
  5. NEURONTIN [Concomitant]
  6. SEROQUEL [Concomitant]
  7. TRAZODONE HCL [Concomitant]
  8. VITAMIN B COMPLEX CAP [Concomitant]
  9. TOPAMAX [Concomitant]

REACTIONS (11)
  - ADHESION [None]
  - ASTHENIA [None]
  - DRUG INEFFECTIVE [None]
  - DYSGEUSIA [None]
  - GASTROINTESTINAL OBSTRUCTION [None]
  - IMPAIRED GASTRIC EMPTYING [None]
  - NAUSEA [None]
  - PERICARDITIS INFECTIVE [None]
  - SPLEEN DISORDER [None]
  - WEIGHT DECREASED [None]
  - WEIGHT INCREASED [None]
